FAERS Safety Report 6718674-9 (Version None)
Quarter: 2010Q2

REPORT INFORMATION
  Report Type: 
  Country: None (occurrence: None)
  Receive Date: 20100506
  Receipt Date: 20100428
  Transmission Date: 20101027
  Serious: Yes (Life-Threatening, Hospitalization)
  Sender: FDA-Public Use
  Company Number: WAES 1004USA04521

PATIENT
  Age: 52 Year
  Sex: Male
  Weight: 160.5733 kg

DRUGS (11)
  1. CAP VORINSTAT 100 MG [Suspect]
     Indication: COLORECTAL CANCER METASTATIC
     Dosage: 800 MG/3X2WK/PO
     Route: 048
     Dates: start: 20100208, end: 20100421
  2. FLUOROURACIL [Suspect]
     Indication: COLORECTAL CANCER METASTATIC
     Dosage: 2400 MG/M[2]/Q2W/IV ; 400 MG/M[2]/Q2W/IV
     Route: 042
     Dates: start: 20100209, end: 20100421
  3. FLUOROURACIL [Suspect]
     Indication: COLORECTAL CANCER METASTATIC
     Dosage: 2400 MG/M[2]/Q2W/IV ; 400 MG/M[2]/Q2W/IV
     Route: 042
     Dates: start: 20100209, end: 20100421
  4. LEUCOVORIN CALCIUM [Suspect]
     Indication: COLORECTAL CANCER METASTATIC
     Dosage: 400 MG/M[2]/Q2W/IV
     Route: 042
     Dates: start: 20100209, end: 20100421
  5. COMPAZINE [Concomitant]
  6. EMEND [Concomitant]
  7. TOPROL-XL [Concomitant]
  8. VYTORIN [Concomitant]
  9. ACETAMINOPHEN [Concomitant]
  10. DEXAMETHASONE [Concomitant]
  11. IBUPROFEN [Concomitant]

REACTIONS (5)
  - ECG SIGNS OF MYOCARDIAL ISCHAEMIA [None]
  - HEADACHE [None]
  - MYOCARDIAL ISCHAEMIA [None]
  - TROPONIN I INCREASED [None]
  - VISUAL IMPAIRMENT [None]
